FAERS Safety Report 5630122-9 (Version None)
Quarter: 2008Q1

REPORT INFORMATION
  Report Type: 
  Country: None (occurrence: None)
  Receive Date: 20080219
  Receipt Date: 20080206
  Transmission Date: 20080703
  Serious: Yes (Other)
  Sender: FDA-Public Use
  Company Number: US-ROCHE-521759

PATIENT
  Sex: Male

DRUGS (4)
  1. ACCUTANE [Suspect]
     Indication: ACNE
     Route: 048
     Dates: start: 19930101, end: 19940101
  2. ACCUTANE [Suspect]
     Route: 048
     Dates: start: 19950908, end: 19960108
  3. ACCUTANE [Suspect]
     Route: 048
     Dates: start: 19960214, end: 19960501
  4. ADVIL [Concomitant]
     Indication: HEADACHE

REACTIONS (6)
  - ANXIETY [None]
  - COLITIS [None]
  - COLITIS ULCERATIVE [None]
  - DEPRESSION [None]
  - GASTROINTESTINAL DISORDER [None]
  - INFLAMMATORY BOWEL DISEASE [None]
